FAERS Safety Report 7321211-1 (Version None)
Quarter: 2011Q1

REPORT INFORMATION
  Report Type: 
  Country: None (occurrence: None)
  Receive Date: 20110223
  Receipt Date: 20110223
  Transmission Date: 20110831
  Serious: Yes (Other)
  Sender: FDA-Public Use
  Company Number: None

PATIENT
  Age: 6 Year
  Sex: Female
  Weight: 24.4942 kg

DRUGS (1)
  1. PHENOBARBITAL 20MG/5ML QUALITEST/MEDCO [Suspect]
     Indication: CONVULSION
     Dosage: 10 ML 2 X'S DAILY OTHER
     Route: 050

REACTIONS (4)
  - PRODUCT CONTAMINATION [None]
  - DISCOMFORT [None]
  - CATHETER SITE HAEMORRHAGE [None]
  - LIQUID PRODUCT PHYSICAL ISSUE [None]
